FAERS Safety Report 7771404-4 (Version None)
Quarter: 2011Q3

REPORT INFORMATION
  Report Type: 
  Country: None (occurrence: None)
  Receive Date: 20110922
  Receipt Date: 20100826
  Transmission Date: 20111222
  Serious: No
  Sender: FDA-Public Use
  Company Number: US-ASTRAZENECA-2007UW21675

PATIENT
  Age: 18311 Day
  Sex: Male
  Weight: 101.6 kg

DRUGS (19)
  1. DIVALPROEX SODIUM [Concomitant]
     Dates: start: 20051121
  2. SEROQUEL [Suspect]
     Indication: SCHIZOPHRENIA
     Dosage: 200 MG TO 275 MG
     Route: 048
     Dates: start: 19980101, end: 20061201
  3. MS CONTIN [Concomitant]
     Dosage: 300 MG 2 IN AM AND 1 HS
     Dates: start: 20050801
  4. VISTARIL [Concomitant]
     Dates: start: 19981007
  5. LICO3 [Concomitant]
     Route: 048
     Dates: start: 19980630
  6. VALIUM [Concomitant]
     Dosage: 2.5-5 MG
     Route: 048
     Dates: start: 20050801
  7. LISINOPRIL [Concomitant]
     Dates: start: 20060921
  8. GLIPIZIDE [Concomitant]
     Dates: start: 20060921
  9. NEXIUM [Concomitant]
     Dates: start: 20060714
  10. ABILIFY [Concomitant]
     Dosage: 5-20 MG
     Route: 048
     Dates: start: 20051121
  11. OMEPRAZOLE [Concomitant]
     Dates: start: 20060921
  12. DEPAKOTE [Concomitant]
     Dates: start: 20050801
  13. REMERON [Concomitant]
     Route: 048
     Dates: start: 19980630
  14. SEROQUEL [Suspect]
     Indication: DEPRESSION
     Dosage: 200 MG TO 275 MG
     Route: 048
     Dates: start: 19980101, end: 20061201
  15. SEROQUEL [Suspect]
     Indication: BIPOLAR DISORDER
     Dosage: 200 MG TO 275 MG
     Route: 048
     Dates: start: 19980101, end: 20061201
  16. SEROQUEL [Suspect]
     Dosage: 25-200 MG
     Route: 048
     Dates: start: 19980630, end: 20051121
  17. SEROQUEL [Suspect]
     Dosage: 25-200 MG
     Route: 048
     Dates: start: 19980630, end: 20051121
  18. SEROQUEL [Suspect]
     Dosage: 25-200 MG
     Route: 048
     Dates: start: 19980630, end: 20051121
  19. LEVAQUIN [Concomitant]
     Dates: start: 20060714

REACTIONS (12)
  - DIABETES MELLITUS [None]
  - HERNIA [None]
  - COUGH [None]
  - PAIN [None]
  - TYPE 2 DIABETES MELLITUS [None]
  - RIB FRACTURE [None]
  - BACK PAIN [None]
  - CHEST PAIN [None]
  - DIABETIC COMPLICATION [None]
  - PNEUMONIA [None]
  - DYSPNOEA [None]
  - HYPERGLYCAEMIA [None]
